FAERS Safety Report 5276330-0 (Version None)
Quarter: 2007Q1

REPORT INFORMATION
  Report Type: 
  Country: None (occurrence: None)
  Receive Date: 20070326
  Receipt Date: 20070314
  Transmission Date: 20070707
  Serious: Yes (Other)
  Sender: FDA-Public Use
  Company Number: US-PFIZER INC-2007020496

PATIENT
  Sex: Male
  Weight: 62.6 kg

DRUGS (4)
  1. DILANTIN [Suspect]
     Indication: GRAND MAL CONVULSION
  2. LYRICA [Suspect]
  3. KEPPRA [Suspect]
     Indication: CONVULSION
     Dates: start: 20040101, end: 20050101
  4. ATIVAN [Concomitant]

REACTIONS (11)
  - ANTICONVULSANT DRUG LEVEL INCREASED [None]
  - ASTHENIA [None]
  - BRONCHITIS [None]
  - CONVULSION [None]
  - DEPRESSION [None]
  - DYSARTHRIA [None]
  - FATIGUE [None]
  - GAIT DISTURBANCE [None]
  - GLIOBLASTOMA [None]
  - PARANOIA [None]
  - RESPIRATORY TRACT CONGESTION [None]
